FAERS Safety Report 9266234 (Version 1)
Quarter: 2013Q2

REPORT INFORMATION
  Report Type: Spontaneous
  Country: CA (occurrence: CA)
  Receive Date: 20130502
  Receipt Date: 20130502
  Transmission Date: 20140414
  Serious: Yes (Hospitalization)
  Sender: FDA-Public Use
  Company Number: CA-AMGEN-CANSP2013029784

PATIENT
  Age: 60 Year
  Sex: Female

DRUGS (1)
  1. NEULASTA [Suspect]
     Indication: PRODUCT USED FOR UNKNOWN INDICATION
     Dosage: 10 MG/1.0 ML
     Route: 065
     Dates: start: 20130406, end: 20130406

REACTIONS (3)
  - Pyrexia [Unknown]
  - Sinusitis [Unknown]
  - Drug ineffective [Unknown]
